FAERS Safety Report 17143768 (Version 1)
Quarter: 2019Q4

REPORT INFORMATION
  Report Type: Report from Study
  Country: GB (occurrence: GB)
  Receive Date: 20191212
  Receipt Date: 20191212
  Transmission Date: 20200122
  Serious: Yes (Other)
  Sender: FDA-Public Use
  Company Number: GB-JNJFOC-20191213782

PATIENT
  Sex: Female

DRUGS (2)
  1. ORAMORPH [Concomitant]
     Active Substance: MORPHINE SULFATE
     Indication: PRODUCT USED FOR UNKNOWN INDICATION
     Route: 065
  2. STELARA [Suspect]
     Active Substance: USTEKINUMAB
     Indication: CROHN^S DISEASE
     Route: 058
     Dates: start: 20191118

REACTIONS (6)
  - Autoscopy [Unknown]
  - Syncope [Unknown]
  - Tremor [Unknown]
  - Pallor [Unknown]
  - Swelling [Unknown]
  - Infusion related reaction [Unknown]
